FAERS Safety Report 4818521-6 (Version None)
Quarter: 2005Q4

REPORT INFORMATION
  Report Type: 
  Country: None (occurrence: None)
  Receive Date: 20051031
  Receipt Date: 20051018
  Transmission Date: 20060501
  Serious: Yes (Other)
  Sender: FDA-Public Use
  Company Number: 2005143983

PATIENT
  Age: 15 Year
  Sex: Male

DRUGS (3)
  1. ZOLOFT [Suspect]
     Indication: DEPRESSION
  2. RISPERDAL [Suspect]
     Indication: NIGHTMARE
  3. STRATTERA [Suspect]
     Indication: ATTENTION DEFICIT/HYPERACTIVITY DISORDER

REACTIONS (7)
  - ADVERSE DRUG REACTION [None]
  - AMNESIA [None]
  - DRUG INTERACTION [None]
  - INJURY [None]
  - SEXUAL ABUSE [None]
  - SUICIDE ATTEMPT [None]
  - THEFT [None]
